FAERS Safety Report 5347390-3 (Version None)
Quarter: 2007Q2

REPORT INFORMATION
  Report Type: 
  Country: None (occurrence: None)
  Receive Date: 20070507
  Receipt Date: 20061116
  Transmission Date: 20071010
  Serious: Yes (Other)
  Sender: FDA-Public Use
  Company Number: 32321

PATIENT
  Age: 22 Year
  Sex: Male
  Weight: 73.0291 kg

DRUGS (1)
  1. ADRIAMYCIN PFS [Suspect]
     Indication: RENAL CELL CARCINOMA STAGE UNSPECIFIED
     Dosage: 94.5 MG/IV/WEEKLY
     Route: 042
     Dates: start: 20061010

REACTIONS (1)
  - SKIN DISCOLOURATION [None]
